FAERS Safety Report 23223666 (Version 1)
Quarter: 2023Q4

REPORT INFORMATION
  Report Type: Spontaneous
  Country: DE (occurrence: DE)
  Receive Date: 20231124
  Receipt Date: 20231124
  Transmission Date: 20240109
  Serious: Yes (Hospitalization)
  Sender: FDA-Public Use
  Company Number: DE-CADRBFARM-2023323917

PATIENT
  Age: 19 Year
  Sex: Female
  Weight: 85 kg

DRUGS (1)
  1. AMOXICILLIN TRIHYDRATE [Suspect]
     Active Substance: AMOXICILLIN
     Indication: Tonsillar inflammation
     Dosage: 1 DOSAGE FORM, TWO TIMES A DAY (ONE TABLET THREE TIMES A DAY)
     Route: 048
     Dates: start: 20230906

REACTIONS (14)
  - Sensitive skin [Recovered/Resolved]
  - Swollen tongue [Recovered/Resolved]
  - Blood test abnormal [Recovered/Resolved]
  - Pyrexia [Recovered/Resolved]
  - Ear swelling [Recovered/Resolved]
  - Pruritus [Recovered/Resolved]
  - Rash [Recovered/Resolved]
  - Pharyngeal swelling [Recovered/Resolved]
  - Swelling face [Recovered/Resolved]
  - Rash erythematous [Recovered/Resolved]
  - Dyspnoea [Recovered/Resolved]
  - Skin warm [Recovered/Resolved]
  - Lip swelling [Recovered/Resolved]
  - Erythema [Recovered/Resolved]

NARRATIVE: CASE EVENT DATE: 20230912
